FAERS Safety Report 5329997-2 (Version None)
Quarter: 2007Q2

REPORT INFORMATION
  Report Type: 
  Country: None (occurrence: None)
  Receive Date: 20070521
  Receipt Date: 20070514
  Transmission Date: 20071010
  Serious: Yes (Disabling)
  Sender: FDA-Public Use
  Company Number: B0447397A

PATIENT
  Age: 37 Year
  Sex: Female
  Weight: 78 kg

DRUGS (15)
  1. FLUTICASONE PROPIONATE [Suspect]
     Indication: ASTHMA
     Dosage: 100MCG TWICE PER DAY
     Route: 055
     Dates: start: 20030101
  2. RITONAVIR [Suspect]
     Route: 065
  3. THEO-DUR [Concomitant]
     Indication: ASTHMA
     Dosage: 200MG THREE TIMES PER DAY
     Route: 048
  4. MEPTIN AIR [Concomitant]
     Route: 055
  5. HOKUNALIN [Concomitant]
     Indication: ASTHMA
     Dosage: 2MG PER DAY
     Route: 062
  6. SEREVENT [Concomitant]
     Indication: ASTHMA
     Dosage: 50MCG TWICE PER DAY
     Route: 055
     Dates: start: 20030101
  7. LOXONIN [Concomitant]
     Route: 065
  8. NORVIR [Concomitant]
     Indication: HIV TEST POSITIVE
     Dosage: 100MG PER DAY
     Route: 048
     Dates: start: 20060411
  9. TRUVADA [Concomitant]
     Indication: HIV TEST POSITIVE
     Dosage: 500MG PER DAY
     Route: 048
     Dates: start: 20061012
  10. REYATAZ [Concomitant]
     Indication: HIV TEST POSITIVE
     Route: 048
     Dates: start: 20030101
  11. ATAZANAVIR SULFATE [Concomitant]
     Route: 065
  12. EMTRICITABINE [Concomitant]
     Route: 065
     Dates: start: 20060701
  13. TENOFOVIR DISOPROXIL FUMARATE [Concomitant]
     Route: 065
     Dates: start: 20060701
  14. ZERIT [Concomitant]
     Indication: HIV TEST POSITIVE
     Dosage: 45MG TWICE PER DAY
     Route: 048
     Dates: start: 20030101, end: 20061011
  15. EPIVIR [Concomitant]
     Indication: HIV TEST POSITIVE
     Dosage: 150MG TWICE PER DAY
     Route: 048
     Dates: start: 20030101, end: 20061011

REACTIONS (9)
  - ACTH STIMULATION TEST ABNORMAL [None]
  - ADRENAL CORTICAL INSUFFICIENCY [None]
  - BLOOD CORTICOTROPHIN DECREASED [None]
  - BLOOD CORTISOL DECREASED [None]
  - CUSHING'S SYNDROME [None]
  - DRUG INTERACTION [None]
  - DRUG LEVEL INCREASED [None]
  - SKIN STRIAE [None]
  - WEIGHT INCREASED [None]
